FAERS Safety Report 11074689 (Version 4)
Quarter: 2015Q2

REPORT INFORMATION
  Report Type: Report from Study
  Country: FR (occurrence: FR)
  Receive Date: 20150429
  Receipt Date: 20150630
  Transmission Date: 20150821
  Serious: Yes (Death, Hospitalization)
  Sender: FDA-Public Use
  Company Number: FR-ROCHE-1562875

PATIENT
  Age: 59 Year
  Sex: Male
  Weight: 88 kg

DRUGS (9)
  1. DOLIPRANE [Concomitant]
     Active Substance: ACETAMINOPHEN
     Indication: PAIN
     Route: 065
  2. KEPPRA [Concomitant]
     Active Substance: LEVETIRACETAM
     Indication: METASTASES TO CENTRAL NERVOUS SYSTEM
     Dosage: 1 DF IN THE MORNING AND IN THE EVENING
     Route: 048
     Dates: start: 201404
  3. SMECTA [Concomitant]
     Active Substance: MONTMORILLONITE
     Dosage: 1 SACHET IF NEEDED
     Route: 065
  4. VEMURAFENIB [Suspect]
     Active Substance: VEMURAFENIB
     Indication: NEOPLASM MALIGNANT
     Dosage: 4 DF IN THE MORNING?LAST DOSE PRIOR TO SAE DIFFUSE URTICARIA  04/APR/2015- 1920 MG
     Route: 048
     Dates: start: 20150327
  5. ATENOLOL. [Concomitant]
     Active Substance: ATENOLOL
     Indication: SINUS ARRHYTHMIA
     Dosage: 1 DF IN THE MORNING
     Route: 048
     Dates: start: 2013
  6. PRAZEPAM [Concomitant]
     Active Substance: PRAZEPAM
     Dosage: 1DF IF NEEDED?MAXIMUM 2 DF PER 24 HOURS
     Route: 065
  7. INEXIUM [Concomitant]
     Active Substance: ESOMEPRAZOLE
     Indication: GASTROOESOPHAGEAL REFLUX DISEASE
     Dosage: 1 DF IN THE EVENING
     Route: 048
     Dates: start: 201404
  8. LYSANXIA [Concomitant]
     Active Substance: PRAZEPAM
     Route: 065
     Dates: start: 201306
  9. VEMURAFENIB [Suspect]
     Active Substance: VEMURAFENIB
     Indication: NEOPLASM MALIGNANT
     Dosage: LAST DOSE PRIOR TO SAE 08/APR/2015
     Route: 048
     Dates: start: 20150327

REACTIONS (6)
  - Hypoxia [Not Recovered/Not Resolved]
  - Hypoxia [Not Recovered/Not Resolved]
  - Lung disorder [Not Recovered/Not Resolved]
  - Dyspnoea [Not Recovered/Not Resolved]
  - Pneumonia [Fatal]
  - Urticaria [Recovering/Resolving]

NARRATIVE: CASE EVENT DATE: 20150404
